FAERS Safety Report 5322085-0 (Version None)
Quarter: 2007Q1

REPORT INFORMATION
  Report Type: 
  Country: None (occurrence: None)
  Receive Date: 20070222
  Receipt Date: 20061213
  Transmission Date: 20070707
  Serious: Yes (Death)
  Sender: FDA-Public Use
  Company Number: HQWYE284115DEC06

PATIENT
  Sex: Female

DRUGS (3)
  1. EFFEXOR [Suspect]
     Indication: ANXIETY
  2. LEXAPRO [Suspect]
     Indication: ANXIETY
  3. REMERON [Suspect]
     Indication: ANXIETY

REACTIONS (1)
  - COMPLETED SUICIDE [None]
